FAERS Safety Report 9203559 (Version 1)
Quarter: 2013Q2

REPORT INFORMATION
  Report Type: Spontaneous
  Country: TR (occurrence: TR)
  Receive Date: 20130402
  Receipt Date: 20130402
  Transmission Date: 20140414
  Serious: Yes (Other)
  Sender: FDA-Public Use
  Company Number: PHHY2013TR031097

PATIENT
  Age: 63 Year
  Sex: Female
  Weight: 98 kg

DRUGS (1)
  1. VOLTAREN [Suspect]
     Indication: PAIN
     Dosage: 1 DF, UNK
     Route: 030
     Dates: start: 20130322, end: 20130322

REACTIONS (3)
  - Burning sensation [Recovered/Resolved]
  - Pruritus [Recovered/Resolved]
  - Erythema [Recovered/Resolved]
